FAERS Safety Report 26010801 (Version 1)
Quarter: 2025Q4

REPORT INFORMATION
  Report Type: Spontaneous
  Country: US (occurrence: US)
  Receive Date: 20251107
  Receipt Date: 20251107
  Transmission Date: 20260117
  Serious: No
  Sender: BAUSCH AND LOMB
  Company Number: US-BAUSCH-BH-2025-019666

PATIENT
  Age: 86 Year
  Sex: Female

DRUGS (1)
  1. XIFAXAN [Suspect]
     Active Substance: RIFAXIMIN
     Indication: Hepatic encephalopathy
     Route: 065
     Dates: start: 202503

REACTIONS (3)
  - Dysphagia [Unknown]
  - Oropharyngeal pain [Unknown]
  - Product prescribing error [Unknown]

NARRATIVE: CASE EVENT DATE: 20251001
